FAERS Safety Report 5242864-8 (Version None)
Quarter: 2007Q1

REPORT INFORMATION
  Report Type: 
  Country: None (occurrence: None)
  Receive Date: 20070215
  Receipt Date: 20070202
  Transmission Date: 20070707
  Serious: Yes (Disabling)
  Sender: FDA-Public Use
  Company Number: 2007S1001022

PATIENT
  Age: 78 Year
  Sex: Female

DRUGS (7)
  1. METHOTREXATE [Suspect]
     Indication: ARTHRITIS
     Dosage: 10 MG;WEEKLY;ORAL
     Route: 048
     Dates: start: 20061115
  2. ATENOLOL [Concomitant]
  3. AMLODIPINE [Concomitant]
  4. SIMVASTATIN [Concomitant]
  5. PREDNISONE ACETATE [Concomitant]
  6. DEXTROPROPOXYPHENE [Concomitant]
  7. DIAZEPAM [Concomitant]

REACTIONS (1)
  - DYSPNOEA [None]
